FAERS Safety Report 11953128 (Version 2)
Quarter: 2016Q1

REPORT INFORMATION
  Report Type: Spontaneous
  Country: JP (occurrence: JP)
  Receive Date: 20160126
  Receipt Date: 20160303
  Transmission Date: 20160526
  Serious: Yes (Other)
  Sender: FDA-Public Use
  Company Number: JP-TEVA-629169ISR

PATIENT
  Age: 8 Decade
  Sex: Male

DRUGS (4)
  1. 5-FU [Suspect]
     Active Substance: FLUOROURACIL
     Indication: OESOPHAGEAL CANCER METASTATIC
     Dosage: 700 MG/M2, UNK
     Route: 042
  2. CISPLATIN. [Suspect]
     Active Substance: CISPLATIN
     Indication: OESOPHAGEAL CANCER METASTATIC
     Dosage: 70 MG/M2, UNK
  3. DOCETAXEL. [Suspect]
     Active Substance: DOCETAXEL
     Indication: OESOPHAGEAL CANCER METASTATIC
     Dosage: 70 MG/M2, UNK
     Route: 041
  4. 5-FU [Suspect]
     Active Substance: FLUOROURACIL
     Dosage: 560 MG/M2, UNK
     Route: 042

REACTIONS (3)
  - Renal impairment [Unknown]
  - Diarrhoea [Unknown]
  - Bone marrow failure [Unknown]
